FAERS Safety Report 7028483-1 (Version None)
Quarter: 2010Q4

REPORT INFORMATION
  Report Type: 
  Country: None (occurrence: None)
  Receive Date: 20101005
  Receipt Date: 20100927
  Transmission Date: 20110411
  Serious: Yes (Hospitalization)
  Sender: FDA-Public Use
  Company Number: FR-PFIZER INC-2010124680

PATIENT
  Age: 42 Year
  Sex: Male

DRUGS (7)
  1. ATARAX [Suspect]
     Indication: ANXIETY
     Dosage: 100 MG, 1X/DAY
     Route: 048
  2. MIRTAZAPINE [Suspect]
     Indication: PSYCHOTIC DISORDER
     Dosage: 1 DF, 1X/DAY
     Route: 048
  3. ZYPREXA [Suspect]
     Indication: PSYCHOTIC DISORDER
     Dosage: 10 MG, 1X/DAY
     Route: 048
     Dates: start: 20050101
  4. ZYPREXA [Suspect]
     Dosage: 5 MG, 1X/DAY
     Route: 048
  5. TERCIAN [Suspect]
     Indication: PSYCHOTIC DISORDER
     Dosage: 250 MG, 1X/DAY
     Route: 048
     Dates: start: 20050101
  6. TERCIAN [Suspect]
     Dosage: 125 MG, 1X/DAY
     Route: 048
  7. BIPRETERAX [Concomitant]
     Indication: HYPERTENSION
     Dosage: 1 DF, 1X/DAY
     Route: 048
     Dates: start: 20050101

REACTIONS (1)
  - COLITIS ISCHAEMIC [None]
